FAERS Safety Report 5761434-6 (Version None)
Quarter: 2008Q2

REPORT INFORMATION
  Report Type: 
  Country: None (occurrence: None)
  Receive Date: 20080606
  Receipt Date: 20080529
  Transmission Date: 20081010
  Serious: Yes (Other)
  Sender: FDA-Public Use
  Company Number: GB-ABBOTT-08P-167-0454499-00

PATIENT
  Sex: Female

DRUGS (5)
  1. VALPROATE SODIUM [Suspect]
     Indication: EPILEPSY
  2. VALPROATE SODIUM [Suspect]
  3. VALPROATE SODIUM [Suspect]
  4. VALPROATE SODIUM [Suspect]
  5. FOLIC ACID [Concomitant]
     Indication: DRUG USE FOR UNKNOWN INDICATION

REACTIONS (1)
  - CONVULSION [None]
